FAERS Safety Report 5394363-0 (Version None)
Quarter: 2007Q3

REPORT INFORMATION
  Report Type: 
  Country: None (occurrence: None)
  Receive Date: 20070723
  Receipt Date: 20070718
  Transmission Date: 20080115
  Serious: Yes (Other)
  Sender: FDA-Public Use
  Company Number: US-BRISTOL-MYERS SQUIBB COMPANY-13849823

PATIENT
  Age: 46 Year
  Sex: Female
  Weight: 91 kg

DRUGS (5)
  1. AVAPRO [Suspect]
     Indication: HYPERTENSION
     Route: 048
     Dates: start: 20060101
  2. TRAZODONE HCL [Concomitant]
  3. CELEXA [Concomitant]
  4. BUPROPION HCL [Concomitant]
  5. CYCLOBENZAPRINE HCL [Concomitant]

REACTIONS (5)
  - ARTHRALGIA [None]
  - FATIGUE [None]
  - MUSCLE TIGHTNESS [None]
  - MUSCULOSKELETAL STIFFNESS [None]
  - PAIN [None]
